FAERS Safety Report 18557518 (Version 1)
Quarter: 2020Q4

REPORT INFORMATION
  Report Type: Spontaneous
  Country: ES (occurrence: ES)
  Receive Date: 20201130
  Receipt Date: 20201130
  Transmission Date: 20210114
  Serious: Yes (Other)
  Sender: FDA-Public Use
  Company Number: ES-JNJFOC-20201147344

PATIENT
  Age: 45 Year
  Sex: Male

DRUGS (1)
  1. YONDELIS [Suspect]
     Active Substance: TRABECTEDIN
     Indication: SARCOMA
     Dosage: SECOND LINE FOR 25 CYCLES
     Route: 042

REACTIONS (2)
  - Visual acuity reduced [Recovering/Resolving]
  - Colour blindness [Recovering/Resolving]
